FAERS Safety Report 12660873 (Version 2)
Quarter: 2016Q3

REPORT INFORMATION
  Report Type: Spontaneous
  Country: US (occurrence: US)
  Receive Date: 20160817
  Receipt Date: 20160901
  Transmission Date: 20161109
  Serious: No
  Sender: FDA-Public Use
  Company Number: US-RELYPSA-RLY2016001300

PATIENT
  Age: 81 Year
  Sex: Male

DRUGS (9)
  1. CREON [Concomitant]
     Active Substance: PANCRELIPASE AMYLASE\PANCRELIPASE LIPASE\PANCRELIPASE PROTEASE
     Dosage: 12000 U, UNK
  2. BICITRA                            /00586801/ [Concomitant]
     Indication: CHRONIC KIDNEY DISEASE
  3. LORAZEPAM. [Concomitant]
     Active Substance: LORAZEPAM
     Dosage: 1 MG, Q.H.S.
  4. LYRICA [Concomitant]
     Active Substance: PREGABALIN
     Dosage: 100 MG, QD
  5. BABY ASPIRIN [Concomitant]
     Active Substance: ASPIRIN
     Dosage: 81 MG, UNK
  6. TYLENOL [Concomitant]
     Active Substance: ACETAMINOPHEN
  7. PARICALCITOL. [Concomitant]
     Active Substance: PARICALCITOL
     Dosage: 1 MG, UNK
  8. GLIPIZIDE. [Concomitant]
     Active Substance: GLIPIZIDE
     Indication: TYPE 2 DIABETES MELLITUS
     Dosage: 5 MG, UNK
  9. VELTASSA [Suspect]
     Active Substance: PATIROMER
     Indication: HYPERKALAEMIA
     Dosage: 8.4 G, QD
     Route: 048
     Dates: start: 20160625, end: 20160704

REACTIONS (5)
  - Abdominal pain upper [Unknown]
  - Constipation [Not Recovered/Not Resolved]
  - Malaise [Unknown]
  - Feeling abnormal [Unknown]
  - Dizziness [Not Recovered/Not Resolved]

NARRATIVE: CASE EVENT DATE: 20160625
